FAERS Safety Report 23810107 (Version 2)
Quarter: 2024Q2

REPORT INFORMATION
  Report Type: Spontaneous
  Country: US (occurrence: US)
  Receive Date: 20240502
  Receipt Date: 20240515
  Transmission Date: 20240715
  Serious: No
  Sender: FDA-Public Use
  Company Number: US-ABBVIE-5742360

PATIENT
  Sex: Female
  Weight: 56 kg

DRUGS (6)
  1. NAMZARIC [Suspect]
     Active Substance: DONEPEZIL HYDROCHLORIDE\MEMANTINE HYDROCHLORIDE
     Indication: Dementia Alzheimer^s type
     Dosage: FORM STRENGTH: 7 MILLIGRAM
     Route: 048
  2. NAMZARIC [Suspect]
     Active Substance: DONEPEZIL HYDROCHLORIDE\MEMANTINE HYDROCHLORIDE
     Indication: Dementia Alzheimer^s type
     Dosage: FORM STRENGTH: 28 MILLIGRAM
     Route: 048
  3. NAMZARIC [Suspect]
     Active Substance: DONEPEZIL HYDROCHLORIDE\MEMANTINE HYDROCHLORIDE
     Indication: Dementia Alzheimer^s type
     Dosage: FORM STRENGTH: 21 MILLIGRAM
     Route: 048
     Dates: start: 202405
  4. NAMZARIC [Suspect]
     Active Substance: DONEPEZIL HYDROCHLORIDE\MEMANTINE HYDROCHLORIDE
     Indication: Dementia Alzheimer^s type
     Dosage: FORM STRENGTH: 14 MILLIGRAM
     Route: 048
  5. AMLODIPINE [Concomitant]
     Active Substance: AMLODIPINE BESYLATE
     Indication: Hypertension
     Dosage: FORM STRENGTH: 5 MILLIGRAM
  6. LEVOTHYROXINE [Concomitant]
     Active Substance: LEVOTHYROXINE\LEVOTHYROXINE SODIUM
     Indication: Thyroid disorder

REACTIONS (3)
  - Oral mucosal discolouration [Recovered/Resolved]
  - Product use complaint [Unknown]
  - Product physical issue [Unknown]
